FAERS Safety Report 5327980-4 (Version None)
Quarter: 2007Q2

REPORT INFORMATION
  Report Type: 
  Country: None (occurrence: None)
  Receive Date: 20070517
  Receipt Date: 20070515
  Transmission Date: 20071010
  Serious: Yes (Hospitalization)
  Sender: FDA-Public Use
  Company Number: US-GENENTECH-229677

PATIENT
  Sex: Female
  Weight: 93.877 kg

DRUGS (5)
  1. XOLAIR [Suspect]
     Indication: DRUG USE FOR UNKNOWN INDICATION
     Dosage: 375 UNK, Q2W
     Route: 058
     Dates: start: 20060906
  2. TYLENOL [Concomitant]
     Indication: HEADACHE
     Dosage: 150 MG, UNK
  3. SINGULAIR [Concomitant]
     Indication: DRUG USE FOR UNKNOWN INDICATION
     Dosage: 10 MG, BID
  4. ASMANEX TWISTHALER [Concomitant]
     Indication: DRUG USE FOR UNKNOWN INDICATION
     Dosage: 440 A?G, BID
  5. XOPENEX [Concomitant]
     Indication: DRUG USE FOR UNKNOWN INDICATION
     Dosage: 2 UNK, TID

REACTIONS (3)
  - DYSGEUSIA [None]
  - HYPOAESTHESIA ORAL [None]
  - PRURITUS [None]
